FAERS Safety Report 4429588-1 (Version None)
Quarter: 2004Q3

REPORT INFORMATION
  Report Type: 
  Country: None (occurrence: None)
  Receive Date: 20040816
  Receipt Date: 20040809
  Transmission Date: 20050211
  Serious: Yes (Other)
  Sender: FDA-Public Use
  Company Number: UKP04000295

PATIENT
  Age: 35 Year
  Sex: Female
  Weight: 90 kg

DRUGS (6)
  1. ASACOL [Suspect]
     Indication: COLITIS
     Dosage: 2 TABLET 4/DAY ORAL
     Route: 048
     Dates: start: 20031024
  2. CERAZETTE (DESOGESTREL) [Suspect]
     Indication: MENSTRUATION IRREGULAR
     Dosage: 10 1/DAY ORAL
     Route: 048
     Dates: start: 20040527, end: 20040705
  3. NORIMIN (ETHINYLESTRADIOL, NORETHISTERONE) [Concomitant]
  4. PROCHLORPERAZINE [Concomitant]
  5. CO-CODAMOL (CODEINE PHOSPHATE) [Concomitant]
  6. LOPERAMIDE HCL [Concomitant]

REACTIONS (5)
  - CHEST DISCOMFORT [None]
  - ENERGY INCREASED [None]
  - FEAR [None]
  - PALPITATIONS [None]
  - PANIC REACTION [None]
